FAERS Safety Report 8370583-8 (Version None)
Quarter: 2012Q2

REPORT INFORMATION
  Report Type: 
  Country: None (occurrence: None)
  Receive Date: 20120518
  Receipt Date: 20120507
  Transmission Date: 20120825
  Serious: Yes (Hospitalization)
  Sender: FDA-Public Use
  Company Number: US-JNJFOC-20120507806

PATIENT
  Sex: Female
  Weight: 51.6 kg

DRUGS (7)
  1. MESALAMINE [Concomitant]
  2. PREDNISONE [Concomitant]
  3. HUMIRA [Concomitant]
     Dates: start: 20101028
  4. FOLIC ACID [Concomitant]
  5. REMICADE [Suspect]
     Indication: CROHN'S DISEASE
     Route: 042
     Dates: start: 20100831
  6. NEXIUM [Concomitant]
  7. XOPENEX [Concomitant]

REACTIONS (1)
  - PLEURAL EFFUSION [None]
